FAERS Safety Report 8233600-1 (Version None)
Quarter: 2012Q1

REPORT INFORMATION
  Report Type: 
  Country: None (occurrence: None)
  Receive Date: 20120326
  Receipt Date: 20120319
  Transmission Date: 20120608
  Serious: Yes (Hospitalization)
  Sender: FDA-Public Use
  Company Number: PHEH2012US006247

PATIENT
  Sex: Female

DRUGS (1)
  1. EXJADE [Suspect]
     Indication: SICKLE CELL ANAEMIA
     Dosage: 1500 MG, DAILY
     Route: 048
     Dates: start: 20060608

REACTIONS (2)
  - CHEST PAIN [None]
  - LIVER FUNCTION TEST ABNORMAL [None]
